FAERS Safety Report 10909420 (Version 1)
Quarter: 2015Q1

REPORT INFORMATION
  Report Type: Spontaneous
  Country: US (occurrence: US)
  Receive Date: 20150312
  Receipt Date: 20150312
  Transmission Date: 20150721
  Serious: No
  Sender: FDA-Public Use
  Company Number: US-SA-2014SA054102

PATIENT
  Age: 89 Year
  Sex: Male

DRUGS (1)
  1. NASACORT AQ [Suspect]
     Active Substance: TRIAMCINOLONE ACETONIDE
     Indication: MULTIPLE ALLERGIES
     Dosage: TAKEN FROM-COUPLE OF YEARS, TAKEN TO-COUPLE OF DAYS AGO, DOSE- 2 SPRAY
     Route: 065

REACTIONS (1)
  - Drug ineffective [Unknown]
